FAERS Safety Report 6169429-8 (Version None)
Quarter: 2009Q2

REPORT INFORMATION
  Report Type: 
  Country: None (occurrence: None)
  Receive Date: 20090428
  Receipt Date: 20090417
  Transmission Date: 20091009
  Serious: Yes (Hospitalization)
  Sender: FDA-Public Use
  Company Number: PHHY2009JP13612

PATIENT
  Age: 67 Year
  Sex: Male

DRUGS (1)
  1. GLEEVEC [Suspect]
     Indication: GASTROINTESTINAL STROMAL TUMOUR
     Dosage: 400 MG/ DAY

REACTIONS (10)
  - ABDOMINAL PAIN [None]
  - ABSCESS [None]
  - ABSCESS RUPTURE [None]
  - GASTRIC PERFORATION [None]
  - MALAISE [None]
  - MALIGNANT ASCITES [None]
  - PURULENT DISCHARGE [None]
  - SURGERY [None]
  - TUMOUR LOCAL INVASION [None]
  - TUMOUR NECROSIS [None]
